FAERS Safety Report 4342849-X (Version None)
Quarter: 2004Q2

REPORT INFORMATION
  Report Type: 
  Country: None (occurrence: None)
  Receive Date: 20040420
  Receipt Date: 20040420
  Transmission Date: 20050107
  Serious: Yes (Hospitalization)
  Sender: FDA-Public Use
  Company Number: None

PATIENT
  Age: 73 Year
  Sex: Male
  Weight: 73.9363 kg

DRUGS (10)
  1. IRINOTECAN PFIZER INC [Suspect]
     Indication: NON-SMALL CELL LUNG CANCER
     Dosage: 75M/GM2 DAY 1, 8, INTRAVENOUS
     Route: 042
     Dates: start: 20040311, end: 20040318
  2. OXALIPLATIN SANOFI-SYNTHELABO INC [Suspect]
     Indication: NON-SMALL CELL LUNG CANCER
     Dosage: 50MG/M2 DAY 1, 8 INTRAVENOUS
     Route: 042
     Dates: start: 20040311, end: 20040318
  3. CHEMOTHERAPY [Concomitant]
  4. ANTI-EMETICS [Concomitant]
  5. ZOFRAN [Concomitant]
  6. DECADRON [Concomitant]
  7. ATIVAN [Concomitant]
  8. CELEBREX [Concomitant]
  9. RANITIDINE [Concomitant]
  10. ROBITUSSIN [Concomitant]

REACTIONS (5)
  - COLITIS [None]
  - NAUSEA [None]
  - NEUTROPHIL COUNT ABNORMAL [None]
  - PYREXIA [None]
  - VOMITING [None]
